FAERS Safety Report 8779521 (Version 24)
Quarter: 2015Q2

REPORT INFORMATION
  Report Type: Report from Study
  Country: CA (occurrence: CA)
  Receive Date: 20120912
  Receipt Date: 20150422
  Transmission Date: 20150821
  Serious: Yes (Other)
  Sender: FDA-Public Use
  Company Number: CA-ROCHE-1080384

PATIENT
  Age: 43 Year
  Sex: Female
  Weight: 60 kg

DRUGS (16)
  1. RITUXAN [Suspect]
     Active Substance: RITUXIMAB
     Indication: RHEUMATOID ARTHRITIS
     Dosage: DAY 1 AND 15
     Route: 042
     Dates: start: 20081105, end: 20090813
  2. PANTOLOC [Concomitant]
     Active Substance: PANTOPRAZOLE SODIUM
  3. PREDNISONE. [Concomitant]
     Active Substance: PREDNISONE
  4. ACETAMINOPHEN. [Concomitant]
     Active Substance: ACETAMINOPHEN
     Indication: PREMEDICATION
     Route: 048
     Dates: start: 20090730, end: 20090813
  5. FOLIC ACID. [Concomitant]
     Active Substance: FOLIC ACID
  6. DIPHENHYDRAMINE HCL [Concomitant]
     Active Substance: DIPHENHYDRAMINE HYDROCHLORIDE
     Indication: PREMEDICATION
     Route: 048
     Dates: start: 20090730, end: 20090813
  7. ACTEMRA [Suspect]
     Active Substance: TOCILIZUMAB
     Indication: RHEUMATOID ARTHRITIS
     Route: 042
     Dates: start: 20111115
  8. MAVIK [Concomitant]
     Active Substance: TRANDOLAPRIL
  9. HYDROMORPHONE [Concomitant]
     Active Substance: HYDROMORPHONE
  10. METHYLPREDNISOLONE. [Concomitant]
     Active Substance: METHYLPREDNISOLONE
     Indication: PREMEDICATION
     Route: 042
     Dates: start: 20090730, end: 20090813
  11. METHOTREXATE [Concomitant]
     Active Substance: METHOTREXATE
  12. VALTREX [Concomitant]
     Active Substance: VALACYCLOVIR HYDROCHLORIDE
  13. ZOPICLONE [Concomitant]
     Active Substance: ZOPICLONE
  14. LYRICA [Concomitant]
     Active Substance: PREGABALIN
  15. PLAQUENIL [Concomitant]
     Active Substance: HYDROXYCHLOROQUINE SULFATE
  16. NAPROXEN. [Concomitant]
     Active Substance: NAPROXEN

REACTIONS (20)
  - Nasal congestion [Unknown]
  - Sinusitis [Recovered/Resolved]
  - Localised infection [Unknown]
  - Blood pressure increased [Unknown]
  - Back pain [Recovered/Resolved]
  - Arthropathy [Unknown]
  - Wound [Not Recovered/Not Resolved]
  - Weight decreased [Unknown]
  - Infusion related reaction [Unknown]
  - Rheumatoid arthritis [Not Recovered/Not Resolved]
  - Osteomyelitis [Unknown]
  - Body temperature decreased [Unknown]
  - Musculoskeletal stiffness [Not Recovered/Not Resolved]
  - Gout [Unknown]
  - Spinal deformity [Recovered/Resolved]
  - Oxygen saturation decreased [Unknown]
  - Drug ineffective [Unknown]
  - Wrist surgery [Unknown]
  - Localised infection [Not Recovered/Not Resolved]
  - Oropharyngeal pain [Unknown]

NARRATIVE: CASE EVENT DATE: 201206
